FAERS Safety Report 23619877 (Version 1)
Quarter: 2024Q1

REPORT INFORMATION
  Report Type: Other
  Country: CA (occurrence: CA)
  Receive Date: 20240312
  Receipt Date: 20240312
  Transmission Date: 20240409
  Serious: Yes (Other)
  Sender: FDA-Public Use
  Company Number: CA-002147023-NVSC2019CA021740

PATIENT
  Age: 74 Year
  Sex: Male
  Weight: 84 kg

DRUGS (39)
  1. XOLAIR [Suspect]
     Active Substance: OMALIZUMAB
     Indication: Chronic spontaneous urticaria
     Route: 058
     Dates: start: 20190912
  2. XOLAIR [Suspect]
     Active Substance: OMALIZUMAB
     Route: 058
     Dates: start: 20190927
  3. XOLAIR [Suspect]
     Active Substance: OMALIZUMAB
     Route: 058
  4. XOLAIR [Suspect]
     Active Substance: OMALIZUMAB
     Route: 058
     Dates: start: 20191219
  5. XOLAIR [Suspect]
     Active Substance: OMALIZUMAB
     Route: 058
  6. XOLAIR [Suspect]
     Active Substance: OMALIZUMAB
     Route: 058
  7. XOLAIR [Suspect]
     Active Substance: OMALIZUMAB
     Route: 058
  8. XOLAIR [Suspect]
     Active Substance: OMALIZUMAB
     Route: 058
  9. XOLAIR [Suspect]
     Active Substance: OMALIZUMAB
     Dosage: 300 MG, EVERY 4 WEEKS
     Route: 058
     Dates: start: 20190523
  10. XOLAIR [Suspect]
     Active Substance: OMALIZUMAB
     Route: 058
  11. XOLAIR [Suspect]
     Active Substance: OMALIZUMAB
     Route: 058
     Dates: start: 20190912
  12. FLOMAX [Concomitant]
     Active Substance: TAMSULOSIN HYDROCHLORIDE
     Indication: Prostatomegaly
     Route: 048
     Dates: start: 2000
  13. VESICARE [Concomitant]
     Active Substance: SOLIFENACIN SUCCINATE
     Indication: Bladder disorder
     Route: 048
     Dates: start: 2003
  14. CRESTOR [Concomitant]
     Active Substance: ROSUVASTATIN CALCIUM
     Indication: Blood cholesterol increased
     Route: 048
     Dates: start: 1995
  15. TOLTERODINE [Concomitant]
     Active Substance: TOLTERODINE
     Indication: Product used for unknown indication
     Dosage: 1 DOSAGE FORM, BID
     Route: 048
  16. LOSEC [Concomitant]
     Active Substance: OMEPRAZOLE
     Indication: Gastrooesophageal reflux disease
     Route: 048
     Dates: start: 1995
  17. ATACAND [Concomitant]
     Active Substance: CANDESARTAN CILEXETIL
     Indication: Blood pressure abnormal
     Route: 048
     Dates: start: 1995
  18. PLENDIL [Concomitant]
     Active Substance: FELODIPINE
     Indication: Blood pressure abnormal
     Route: 048
     Dates: start: 1995
  19. EBASTINE [Concomitant]
     Active Substance: EBASTINE
     Indication: Product used for unknown indication
     Dosage: 2 DF, BID
     Route: 048
     Dates: start: 2018, end: 2019
  20. MIRABEGRON [Concomitant]
     Active Substance: MIRABEGRON
     Indication: Bladder disorder
     Dosage: 1 DOSAGE FORM, IN THE MORNING
     Route: 048
  21. EPIPEN [Concomitant]
     Active Substance: EPINEPHRINE
     Indication: Anaphylaxis treatment
     Dosage: UNK, IF NEEDED
     Route: 065
  22. EPIPEN [Concomitant]
     Active Substance: EPINEPHRINE
     Indication: Urticaria
  23. TADALAFIL [Concomitant]
     Active Substance: TADALAFIL
     Indication: Product used for unknown indication
     Dosage: 1 DOSAGE FORM, NIGHTLY
     Route: 065
  24. BISOPROLOL FUMARATE [Concomitant]
     Active Substance: BISOPROLOL FUMARATE
     Indication: Product used for unknown indication
     Dosage: 50 MG, BID
     Route: 065
  25. DUTASTERIDE [Concomitant]
     Active Substance: DUTASTERIDE
     Indication: Product used for unknown indication
     Dosage: 1 DOSAGE FORM, QD (IN THE EVENING)
     Route: 048
  26. FELODIPINE [Concomitant]
     Active Substance: FELODIPINE
     Indication: Hypertension
     Dosage: 5 MG, QD
     Route: 065
  27. LIPITOR [Concomitant]
     Active Substance: ATORVASTATIN CALCIUM
     Indication: Product used for unknown indication
     Dosage: 1 DOSAGE FORM, QD
     Route: 065
  28. AVODART [Concomitant]
     Active Substance: DUTASTERIDE
     Indication: Product used for unknown indication
     Dosage: 0.5 MG
     Route: 065
  29. RAPAFLO [Concomitant]
     Active Substance: SILODOSIN
     Indication: Product used for unknown indication
     Dosage: 1 DOSAGE FORM, QD
     Route: 065
  30. COZAAR [Concomitant]
     Active Substance: LOSARTAN POTASSIUM
     Indication: Hypertension
     Dosage: 1 DOSAGE FORM, BID
     Route: 065
  31. MYRBETRIQ [Concomitant]
     Active Substance: MIRABEGRON
     Indication: Product used for unknown indication
     Dosage: 1 DOSAGE FORM, QD
     Route: 065
  32. RABEPRAZOLE SODIUM [Concomitant]
     Active Substance: RABEPRAZOLE SODIUM
     Indication: Product used for unknown indication
     Dosage: 20 MG, QD
     Route: 065
  33. BENADRYL COLD AND FLU [Concomitant]
     Indication: Product used for unknown indication
     Dosage: 2 DF, BID
     Route: 048
     Dates: start: 2018, end: 2019
  34. CLARITIN [Concomitant]
     Active Substance: LORATADINE
     Indication: Product used for unknown indication
     Dosage: 2 DF, BID
     Route: 065
     Dates: start: 2018, end: 2019
  35. CIPROFLOXACIN [Concomitant]
     Active Substance: CIPROFLOXACIN
     Indication: Prostate infection
     Route: 065
  36. CIPROFLOXACIN [Concomitant]
     Active Substance: CIPROFLOXACIN
     Indication: Bladder disorder
     Route: 065
  37. TOBRAMYCIN [Concomitant]
     Active Substance: TOBRAMYCIN
     Indication: Product used for unknown indication
     Dosage: 4 DF, QD
     Route: 065
     Dates: start: 202005
  38. TOBRAMYCIN [Concomitant]
     Active Substance: TOBRAMYCIN
     Dosage: 1 DF, QD
     Route: 065
  39. PREDNISONE [Concomitant]
     Active Substance: PREDNISONE
     Indication: Product used for unknown indication
     Route: 048
     Dates: start: 20190516

REACTIONS (20)
  - Prostate cancer [Unknown]
  - Neoplasm malignant [Unknown]
  - Diabetes mellitus [Recovering/Resolving]
  - Urinary retention [Unknown]
  - Blister [Unknown]
  - Mass [Unknown]
  - Swelling [Unknown]
  - Nasopharyngitis [Recovered/Resolved]
  - Discomfort [Unknown]
  - COVID-19 [Unknown]
  - Weight decreased [Unknown]
  - Hypotension [Unknown]
  - Fatigue [Unknown]
  - Decreased appetite [Unknown]
  - Urine abnormality [Unknown]
  - Muscle spasms [Unknown]
  - Pain [Unknown]
  - Urticaria [Not Recovered/Not Resolved]
  - Infection [Unknown]
  - Superficial injury of eye [Unknown]

NARRATIVE: CASE EVENT DATE: 20200424
